FAERS Safety Report 18117744 (Version 1)
Quarter: 2020Q3

REPORT INFORMATION
  Report Type: Report from Study
  Country: FR (occurrence: FR)
  Receive Date: 20200806
  Receipt Date: 20200806
  Transmission Date: 20201103
  Serious: Yes (Other)
  Sender: FDA-Public Use
  Company Number: NVSC2020FR211467

PATIENT
  Age: 69 Year
  Sex: Female

DRUGS (4)
  1. ELTROMBOPAG [Suspect]
     Active Substance: ELTROMBOPAG
     Indication: ACUTE MYELOID LEUKAEMIA
     Dosage: UNK
     Route: 048
     Dates: start: 20190212, end: 20190225
  2. DAUNORUBICIN [Concomitant]
     Active Substance: DAUNORUBICIN
     Indication: ACUTE MYELOID LEUKAEMIA
     Dosage: 99 MG
     Route: 042
     Dates: start: 20190202, end: 20190204
  3. CYTARABINE. [Concomitant]
     Active Substance: CYTARABINE
     Indication: ACUTE MYELOID LEUKAEMIA
     Dosage: 165 MG
     Route: 042
     Dates: start: 20190202, end: 20190208
  4. LOMUSTINE. [Concomitant]
     Active Substance: LOMUSTINE
     Indication: ACUTE MYELOID LEUKAEMIA
     Dosage: 330 MG
     Route: 048
     Dates: start: 20190202, end: 20190202

REACTIONS (1)
  - Immune thrombocytopenia [Not Recovered/Not Resolved]

NARRATIVE: CASE EVENT DATE: 20200220
